FAERS Safety Report 17888847 (Version 1)
Quarter: 2020Q2

REPORT INFORMATION
  Report Type: Spontaneous
  Country: DE (occurrence: DE)
  Receive Date: 20200612
  Receipt Date: 20200612
  Transmission Date: 20200714
  Serious: Yes (Hospitalization, Disabling, Other)
  Sender: FDA-Public Use
  Company Number: DE-BRACCO-2020DE02233

PATIENT
  Age: 83 Year
  Sex: Male
  Weight: 70 kg

DRUGS (6)
  1. SOLUTRAST 300 [Suspect]
     Active Substance: IOPAMIDOL
     Indication: DIAGNOSTIC PROCEDURE
     Dosage: 10:05 - 11:45 (TIME)
     Route: 013
     Dates: start: 20200504, end: 20200504
  2. BISOPROLOL [Concomitant]
     Active Substance: BISOPROLOL
     Dosage: 1-0-0
  3. SOLIFENACIN [Concomitant]
     Active Substance: SOLIFENACIN
     Dosage: 1-0-0
  4. METFORMIN [Concomitant]
     Active Substance: METFORMIN HYDROCHLORIDE
     Dosage: 0.5-0-0.5
  5. SIMVASTATIN. [Concomitant]
     Active Substance: SIMVASTATIN
     Dosage: 0-0-1
  6. SITAGLIPTIN [Concomitant]
     Active Substance: SITAGLIPTIN
     Dosage: 1-0-0

REACTIONS (1)
  - Intracardiac thrombus [Recovered/Resolved with Sequelae]

NARRATIVE: CASE EVENT DATE: 20200504
